FAERS Safety Report 25892651 (Version 1)
Quarter: 2025Q4

REPORT INFORMATION
  Report Type: Spontaneous
  Country: TR (occurrence: TR)
  Receive Date: 20251007
  Receipt Date: 20251007
  Transmission Date: 20260119
  Serious: Yes (Life-Threatening, Other)
  Sender: AMGEN
  Company Number: TR-AMGEN-TURSP2025195791

PATIENT

DRUGS (3)
  1. XGEVA [Suspect]
     Active Substance: DENOSUMAB
     Indication: Metastases to bone
     Dosage: 120 MILLIGRAM, Q4WK
     Route: 058
  2. CALCIUM [Concomitant]
     Active Substance: CALCIUM
     Indication: Mineral supplementation
     Dosage: UNK MILLIGRAM, QD
  3. VITAMIN D [Concomitant]
     Active Substance: VITAMIN D NOS
     Dosage: 880 INTERNATIONAL UNIT, QD

REACTIONS (6)
  - Infection [Unknown]
  - Hypocalcaemia [Unknown]
  - Toxicity to various agents [Unknown]
  - Hypercalcaemia of malignancy [Unknown]
  - Blood creatinine increased [Unknown]
  - Musculoskeletal disorder [Unknown]
